FAERS Safety Report 5282074-1 (Version None)
Quarter: 2007Q1

REPORT INFORMATION
  Report Type: 
  Country: None (occurrence: None)
  Receive Date: 20070330
  Receipt Date: 20070319
  Transmission Date: 20070707
  Serious: Yes (Hospitalization, Disabling, Other)
  Sender: FDA-Public Use
  Company Number: US-PFIZER INC-001-0073-M0000137

PATIENT
  Sex: Female
  Weight: 110.7 kg

DRUGS (7)
  1. DILANTIN [Suspect]
     Indication: CONVULSION
     Dosage: DAILY DOSE:450MG
  2. DILANTIN [Suspect]
     Route: 048
  3. DILANTIN [Suspect]
     Indication: CONVULSION
     Dosage: DAILY DOSE:50MG
     Route: 048
  4. PHENYTOIN SODIUM [Suspect]
     Indication: CONVULSION
     Route: 048
  5. IBUPROFEN [Suspect]
     Indication: ARTHRALGIA
     Dates: start: 20060101, end: 20060101
  6. PHENOBARBITAL TAB [Concomitant]
  7. LAXATIVES [Concomitant]

REACTIONS (16)
  - ANTICONVULSANT DRUG LEVEL DECREASED [None]
  - CONVULSION [None]
  - DEHYDRATION [None]
  - DIZZINESS [None]
  - DYSGEUSIA [None]
  - FATIGUE [None]
  - FEELING ABNORMAL [None]
  - GINGIVAL DISORDER [None]
  - MUSCULAR WEAKNESS [None]
  - PERNICIOUS ANAEMIA [None]
  - PETIT MAL EPILEPSY [None]
  - PHOTOPSIA [None]
  - RASH [None]
  - SLUGGISHNESS [None]
  - TOOTH LOSS [None]
  - WEIGHT FLUCTUATION [None]
